FAERS Safety Report 8567743-X (Version None)
Quarter: 2012Q3

REPORT INFORMATION
  Report Type: 
  Country: None (occurrence: None)
  Receive Date: 20120803
  Receipt Date: 20120730
  Transmission Date: 20120928
  Serious: Yes (Hospitalization, Other)
  Sender: FDA-Public Use
  Company Number: US-BRISTOL-MYERS SQUIBB COMPANY-16706087

PATIENT
  Age: 69 Year
  Sex: Female

DRUGS (9)
  1. LECITHIN [Concomitant]
     Dates: start: 20111007
  2. ZOFRAN [Concomitant]
     Dates: start: 20120524
  3. IBUPROFEN [Concomitant]
     Dates: start: 20120510
  4. VEMURAFENIB [Suspect]
     Indication: MALIGNANT MELANOMA
     Dosage: INTERRUPTED ON 20JUN2012 RESTARTED 28JUN12: 720 MG,COURSE:1,STOP DT:09JUL2012
     Route: 048
     Dates: start: 20120503
  5. CALCIUM + MAGNESIUM [Concomitant]
     Dates: start: 20111007
  6. OXYCODONE HCL [Concomitant]
     Dates: start: 20120524
  7. MULTI-VITAMIN [Concomitant]
     Dates: start: 20111007
  8. IPILIMUMAB [Suspect]
     Indication: MALIGNANT MELANOMA
     Dosage: INTERRUPTED ON 21JUN2012 RECEIVED DOSE ON 12JUL2012
     Route: 042
     Dates: start: 20120531
  9. FISH OIL [Concomitant]
     Dates: start: 20111010

REACTIONS (2)
  - TEMPORAL ARTERITIS [None]
  - ALANINE AMINOTRANSFERASE INCREASED [None]
